FAERS Safety Report 18218016 (Version 1)
Quarter: 2020Q3

REPORT INFORMATION
  Report Type: Spontaneous
  Country: US (occurrence: US)
  Receive Date: 20200901
  Receipt Date: 20200901
  Transmission Date: 20201103
  Serious: No
  Sender: FDA-Public Use
  Company Number: None

PATIENT
  Age: 31 Year
  Sex: Male
  Weight: 91 kg

DRUGS (1)
  1. EMPAGLIFLOZIN (EMPAGLIFOZIN 10MG TAB) [Suspect]
     Active Substance: EMPAGLIFLOZIN
     Indication: DIABETES MELLITUS
     Route: 048
     Dates: start: 20200319, end: 20200401

REACTIONS (2)
  - Abdominal pain [None]
  - Chest pain [None]

NARRATIVE: CASE EVENT DATE: 20200401
